FAERS Safety Report 7524421-3 (Version None)
Quarter: 2011Q2

REPORT INFORMATION
  Report Type: 
  Country: None (occurrence: None)
  Receive Date: 20110606
  Receipt Date: 20110530
  Transmission Date: 20111010
  Serious: Yes (Death, Hospitalization)
  Sender: FDA-Public Use
  Company Number: PHHY2010MX82184

PATIENT
  Sex: Male

DRUGS (1)
  1. DIOVAN HCT [Suspect]
     Indication: HYPERTENSION
     Dosage: 160 MG VALS AND 12.5 MG HYDR,  DAILY
     Route: 048
     Dates: start: 20090801, end: 20100701

REACTIONS (5)
  - CARDIAC DISORDER [None]
  - INFARCTION [None]
  - RENAL DISORDER [None]
  - CHEST PAIN [None]
  - AGITATION [None]
